FAERS Safety Report 4929549-X (Version None)
Quarter: 2006Q1

REPORT INFORMATION
  Report Type: 
  Country: None (occurrence: None)
  Receive Date: 20060223
  Receipt Date: 20060210
  Transmission Date: 20060701
  Serious: Yes (Other)
  Sender: FDA-Public Use
  Company Number: 2006021566

PATIENT
  Sex: Male
  Weight: 113.3993 kg

DRUGS (2)
  1. VIAGRA [Suspect]
     Indication: ERECTILE DYSFUNCTION
     Dosage: 100 MG (100 MG AS NECESSARY), ORAL
     Route: 048
     Dates: start: 20040101
  2. LIBRIUM [Concomitant]

REACTIONS (7)
  - DRUG EFFECT DECREASED [None]
  - GASTROOESOPHAGEAL REFLUX DISEASE [None]
  - LIMB INJURY [None]
  - PAIN IN EXTREMITY [None]
  - POOR PERIPHERAL CIRCULATION [None]
  - STOMACH DISCOMFORT [None]
  - VISION BLURRED [None]
